FAERS Safety Report 14684065 (Version 2)
Quarter: 2018Q2

REPORT INFORMATION
  Report Type: Spontaneous
  Country: JP (occurrence: JP)
  Receive Date: 20180327
  Receipt Date: 20180521
  Transmission Date: 20180711
  Serious: Yes (Hospitalization, Disabling, Other)
  Sender: FDA-Public Use
  Company Number: JP-GLAXOSMITHKLINE-JP2018JPN048373

PATIENT
  Age: 48 Year
  Sex: Male
  Weight: 76 kg

DRUGS (6)
  1. MEPOLIZUMAB [Suspect]
     Active Substance: MEPOLIZUMAB
     Dosage: 100 MG, ONCE A MONTH
     Route: 058
     Dates: start: 20180306
  2. PREDNISOLONE TABLETS [Concomitant]
     Indication: EOSINOPHILIC GRANULOMATOSIS WITH POLYANGIITIS
     Dosage: 35 MG, 1D
     Route: 048
  3. KIPRES TABLETS [Concomitant]
     Indication: ASTHMA
     Dosage: 10 MG, 1D
     Route: 048
  4. FLUTIFORM [Concomitant]
     Active Substance: FLUTICASONE PROPIONATE\FORMOTEROL FUMARATE
     Indication: ASTHMA
     Dosage: 4 DF, BID
     Route: 055
  5. MEPOLIZUMAB [Suspect]
     Active Substance: MEPOLIZUMAB
     Indication: ASTHMA
     Dosage: 100 MG, ONCE A MONTH
     Route: 058
     Dates: start: 20171212
  6. PREDNISOLONE TABLETS [Concomitant]
     Dosage: 4 MG, 1D
     Route: 048

REACTIONS (3)
  - Hemiplegia [Not Recovered/Not Resolved]
  - Dysarthria [Unknown]
  - Cerebral haemorrhage [Recovered/Resolved]

NARRATIVE: CASE EVENT DATE: 20180305
